FAERS Safety Report 17588538 (Version 2)
Quarter: 2020Q3

REPORT INFORMATION
  Report Type: Spontaneous
  Country: US (occurrence: US)
  Receive Date: 20200327
  Receipt Date: 20200708
  Transmission Date: 20201102
  Serious: Yes (Death)
  Sender: FDA-Public Use
  Company Number: US-TEVA-2020-US-1210254

PATIENT
  Sex: Female

DRUGS (6)
  1. FENTANYL. [Suspect]
     Active Substance: FENTANYL
     Dosage: 25 MICROGRAM/HR
     Route: 062
     Dates: start: 20111110
  2. FENTANYL. [Suspect]
     Active Substance: FENTANYL
     Indication: PRODUCT USED FOR UNKNOWN INDICATION
     Dosage: 25 MICROGRAM/HR
     Route: 062
     Dates: start: 20110915, end: 20120227
  3. FENTANYL. [Suspect]
     Active Substance: FENTANYL
     Dosage: 25 MICROGRAM/HR
     Route: 062
     Dates: start: 20120105
  4. FENTANYL. [Suspect]
     Active Substance: FENTANYL
     Dosage: 12 MICROGRAM/HR
     Route: 062
     Dates: start: 20120203
  5. FENTANYL. [Suspect]
     Active Substance: FENTANYL
     Dosage: 25 MICROGRAM/HR
     Route: 062
     Dates: start: 20111208
  6. FENTANYL. [Suspect]
     Active Substance: FENTANYL
     Dosage: 25 MICROGRAM/HR
     Route: 062
     Dates: start: 20111013

REACTIONS (3)
  - Drug dependence [Fatal]
  - Death [Fatal]
  - Overdose [Fatal]
